FAERS Safety Report 6042572-X (Version None)
Quarter: 2009Q1

REPORT INFORMATION
  Report Type: 
  Country: None (occurrence: None)
  Receive Date: 20090119
  Receipt Date: 20090113
  Transmission Date: 20090719
  Serious: No
  Sender: FDA-Public Use
  Company Number: US-JNJFOC-20090102704

PATIENT
  Sex: Female
  Weight: 54.43 kg

DRUGS (3)
  1. FENTANYL TRANSDERMAL SYSTEM [Suspect]
     Indication: BACK PAIN
     Route: 062
  2. NEURONTIN [Concomitant]
     Indication: LOSS OF CONSCIOUSNESS
     Route: 048
  3. UNKNOWN MEDICATION [Concomitant]
     Indication: BLOOD PRESSURE
     Dosage: DAILY
     Route: 048

REACTIONS (2)
  - APPLICATION SITE PAIN [None]
  - DRUG ADMINISTERED AT INAPPROPRIATE SITE [None]
